FAERS Safety Report 13406930 (Version 2)
Quarter: 2017Q2

REPORT INFORMATION
  Report Type: Spontaneous
  Country: JP (occurrence: JP)
  Receive Date: 20170405
  Receipt Date: 20170621
  Transmission Date: 20170830
  Serious: Yes (Hospitalization, Other)
  Sender: FDA-Public Use
  Company Number: JP-PFIZER INC-2017146771

PATIENT
  Age: 70 Year
  Sex: Male

DRUGS (1)
  1. RHEUMATREX [Suspect]
     Active Substance: METHOTREXATE SODIUM
     Indication: RHEUMATOID ARTHRITIS
     Dosage: 12 MG WEEKLY (DIVIDED IN TWO DOSES OF 8 MG AND 4 MG)
     Route: 048

REACTIONS (1)
  - Lung neoplasm malignant [Recovering/Resolving]
